FAERS Safety Report 11391046 (Version 1)
Quarter: 2015Q3

REPORT INFORMATION
  Report Type: Spontaneous
  Country: GB (occurrence: None)
  Receive Date: 20150813
  Receipt Date: 20150813
  Transmission Date: 20151125
  Serious: Yes (Hospitalization)
  Sender: FDA-Public Use
  Company Number: 2015RR-100535

PATIENT
  Age: 60 Year
  Sex: Female

DRUGS (8)
  1. VENLAFAXINE [Suspect]
     Active Substance: VENLAFAXINE HYDROCHLORIDE
     Indication: PRODUCT USED FOR UNKNOWN INDICATION
  2. BUPRENORPHINE (BUPRENORPHINE) UNKNOWN [Suspect]
     Active Substance: BUPRENORPHINE
     Indication: PRODUCT USED FOR UNKNOWN INDICATION
  3. MST CONTINUS (MORPHINE, MORPHINE SULPHATE) [Suspect]
     Active Substance: MORPHINE SULFATE
     Indication: BIPOLAR DISORDER
     Route: 048
  4. MST CONTINUS (MORPHINE, MORPHINE SULPHATE) [Suspect]
     Active Substance: MORPHINE SULFATE
     Indication: FIBROMYALGIA
     Route: 048
  5. AMITRIPTYLINE (AMITRIPTLINE) UNKNOWN [Suspect]
     Active Substance: AMITRIPTYLINE
     Indication: POSTPARTUM DEPRESSION
  6. DIAZEPAM (DIAZEPAM) UNKNOWN [Suspect]
     Active Substance: DIAZEPAM
     Indication: PRODUCT USED FOR UNKNOWN INDICATION
  7. QUETIAPINE (QUETIAPINE) UNKNOWN, UNKNOWN [Suspect]
     Active Substance: QUETIAPINE
     Indication: PRODUCT USED FOR UNKNOWN INDICATION
  8. ORAMORPH SR SUSTAINED RELEASE [Suspect]
     Active Substance: MORPHINE SULFATE
     Indication: PRODUCT USED FOR UNKNOWN INDICATION

REACTIONS (9)
  - Palpitations [None]
  - Accidental overdose [None]
  - Temperature intolerance [None]
  - Neuropathy peripheral [None]
  - Paraesthesia [None]
  - Dermatitis allergic [None]
  - Adverse drug reaction [None]
  - Dyspepsia [None]
  - Hospitalisation [None]
